FAERS Safety Report 8581656-9 (Version None)
Quarter: 2012Q3

REPORT INFORMATION
  Report Type: 
  Country: None (occurrence: None)
  Receive Date: 20120801
  Receipt Date: 20120801
  Transmission Date: 20120928
  Serious: Yes (Hospitalization)
  Sender: FDA-Public Use
  Company Number: None

PATIENT
  Age: 83 Year
  Sex: Female

DRUGS (13)
  1. ATORVASTATIN [Concomitant]
  2. CHOLECALCIFEROL [Concomitant]
  3. GLYBURIDE [Concomitant]
  4. NITROGLYCERIN [Concomitant]
  5. MIRALAX [Concomitant]
  6. ASPIRIN [Concomitant]
  7. PLAVIX [Concomitant]
  8. LISINOPRIL [Suspect]
     Indication: HYPERTENSION
     Dosage: 20MG DAILY PO
     Route: 048
  9. NEXIUM [Concomitant]
  10. BENEFIBER [Concomitant]
  11. METOPROLOL [Concomitant]
  12. AMLODIPINE [Concomitant]
  13. FERROUS SULFATE TAB [Concomitant]

REACTIONS (1)
  - ANGIOEDEMA [None]
